FAERS Safety Report 4488215-8 (Version None)
Quarter: 2004Q4

REPORT INFORMATION
  Report Type: 
  Country: None (occurrence: None)
  Receive Date: 20041025
  Receipt Date: 20041012
  Transmission Date: 20050328
  Serious: Yes (Hospitalization, Disabling)
  Sender: FDA-Public Use
  Company Number: HQWYE710625JUN04

PATIENT
  Age: 50 Year
  Sex: Female
  Weight: 68.1 kg

DRUGS (2)
  1. EFFEXOR XR [Suspect]
     Indication: DEPRESSION
     Dosage: 150 MG EVERY AM, 75 MG EVERY NOON AND 150 MG EVERY PM, ORAL
     Route: 048
     Dates: end: 20021201
  2. PREVACID [Concomitant]

REACTIONS (15)
  - AMNESIA [None]
  - BARRETT'S OESOPHAGUS [None]
  - BRAIN DAMAGE [None]
  - CONDITION AGGRAVATED [None]
  - DISORIENTATION [None]
  - DRUG WITHDRAWAL SYNDROME [None]
  - GRAND MAL CONVULSION [None]
  - HEADACHE [None]
  - HYPERTENSION [None]
  - INTENTIONAL OVERDOSE [None]
  - INTRACRANIAL ANEURYSM [None]
  - MENTAL IMPAIRMENT [None]
  - SUICIDAL IDEATION [None]
  - SUICIDE ATTEMPT [None]
  - THINKING ABNORMAL [None]
